FAERS Safety Report 8095386-3 (Version None)
Quarter: 2012Q1

REPORT INFORMATION
  Report Type: 
  Country: None (occurrence: None)
  Receive Date: 20120126
  Receipt Date: 20120116
  Transmission Date: 20120608
  Serious: Yes (Life-Threatening, Hospitalization)
  Sender: FDA-Public Use
  Company Number: 1000026582

PATIENT
  Sex: Male
  Weight: 93 kg

DRUGS (3)
  1. BACLOFEN [Suspect]
     Dosage: OVERDOSE 1850 MG (ONCE)
  2. LEXAPRO [Suspect]
     Dosage: OVERDOSE: UNCLEAR IF 160MG OR 100 MG (ONCE)
  3. MIRTAZAPINE [Suspect]
     Dosage: OVERDOSE 230 MG (ONCE)

REACTIONS (12)
  - BLOOD LACTIC ACID INCREASED [None]
  - SUICIDE ATTEMPT [None]
  - RESPIRATORY ACIDOSIS [None]
  - CONVULSION [None]
  - MULTIPLE DRUG OVERDOSE INTENTIONAL [None]
  - SNORING [None]
  - MUSCLE SPASMS [None]
  - MIOSIS [None]
  - POISONING [None]
  - COMA [None]
  - SINUS BRADYCARDIA [None]
  - CONTINUOUS HAEMODIAFILTRATION [None]
